FAERS Safety Report 15695509 (Version 1)
Quarter: 2018Q4

REPORT INFORMATION
  Report Type: Report from Study
  Country: JP (occurrence: JP)
  Receive Date: 20181206
  Receipt Date: 20181206
  Transmission Date: 20190205
  Serious: Yes (Death, Life-Threatening, Other)
  Sender: FDA-Public Use
  Company Number: JP-PFIZER INC-2018264462

PATIENT
  Age: 53 Year
  Sex: Female
  Weight: 53 kg

DRUGS (5)
  1. BESPONSA [Suspect]
     Active Substance: INOTUZUMAB OZOGAMICIN
     Dosage: 0.77 MG, 1X/DAY
     Route: 042
     Dates: start: 20180529, end: 20180529
  2. MEROPEN [MEROPENEM] [Concomitant]
     Indication: INFECTION PROPHYLAXIS
     Dosage: UNK
     Route: 041
     Dates: start: 20180519, end: 20180521
  3. BESPONSA [Suspect]
     Active Substance: INOTUZUMAB OZOGAMICIN
     Dosage: 0.77 MG, 1X/DAY
     Route: 042
     Dates: start: 20180522, end: 20180522
  4. BESPONSA [Suspect]
     Active Substance: INOTUZUMAB OZOGAMICIN
     Indication: ACUTE LYMPHOCYTIC LEUKAEMIA
     Dosage: 1.24 MG, 1X/DAY
     Route: 042
     Dates: start: 20180515, end: 20180515
  5. NEUTROGIN [Concomitant]
     Active Substance: LENOGRASTIM
     Indication: NEUTROPHIL COUNT DECREASED
     Dosage: UNK
     Route: 058
     Dates: start: 20180518, end: 20180518

REACTIONS (2)
  - Cerebral haemorrhage [Fatal]
  - Bone marrow failure [Recovered/Resolved]

NARRATIVE: CASE EVENT DATE: 20180531
